FAERS Safety Report 7358912-5 (Version None)
Quarter: 2011Q1

REPORT INFORMATION
  Report Type: 
  Country: None (occurrence: None)
  Receive Date: 20110317
  Receipt Date: 20110311
  Transmission Date: 20110831
  Serious: Yes (Other)
  Sender: FDA-Public Use
  Company Number: GB-BRISTOL-MYERS SQUIBB COMPANY-15589385

PATIENT
  Age: 77 Year
  Sex: Female
  Weight: 71 kg

DRUGS (10)
  1. BENDROFLUMETHIAZIDE [Concomitant]
     Dates: start: 20101118, end: 20101216
  2. CLOMIPRAMINE [Concomitant]
     Dates: start: 20101118
  3. SALMETEROL [Concomitant]
     Dates: start: 20110215
  4. FENOFIBRATE [Concomitant]
     Dates: start: 20101118
  5. PLANTAGO OVATA [Concomitant]
     Dates: start: 20101118
  6. MICONAZOLE [Concomitant]
     Dates: start: 20110215
  7. METFORMIN HCL [Suspect]
     Dates: start: 20110215
  8. BUDESONIDE [Concomitant]
     Dates: start: 20101118
  9. DICLOFENAC SODIUM [Concomitant]
  10. SALBUTAMOL [Concomitant]
     Dates: start: 20110127

REACTIONS (1)
  - LIVER FUNCTION TEST ABNORMAL [None]
